FAERS Safety Report 14993763 (Version 1)
Quarter: 2018Q2

REPORT INFORMATION
  Report Type: Spontaneous
  Country: US (occurrence: US)
  Receive Date: 20180611
  Receipt Date: 20180611
  Transmission Date: 20180711
  Serious: No
  Sender: FDA-Public Use
  Company Number: US-009507513-1805USA014225

PATIENT
  Sex: Female
  Weight: 50.34 kg

DRUGS (2)
  1. NEXPLANON [Suspect]
     Active Substance: ETONOGESTREL
     Indication: CONTRACEPTION
     Dosage: 3 YEAR IMPLANT, INSIDE THE LEFT ARM
     Route: 059
     Dates: start: 2014
  2. IBUPROFEN. [Concomitant]
     Active Substance: IBUPROFEN
     Indication: MIGRAINE
     Dosage: UNK

REACTIONS (5)
  - Anxiety [Unknown]
  - Menstruation irregular [Unknown]
  - Tachycardia [Unknown]
  - Oligomenorrhoea [Unknown]
  - Migraine [Unknown]

NARRATIVE: CASE EVENT DATE: 2015
